FAERS Safety Report 20109213 (Version 1)
Quarter: 2021Q4

REPORT INFORMATION
  Report Type: Spontaneous
  Country: None (occurrence: US)
  Receive Date: 20211124
  Receipt Date: 20211124
  Transmission Date: 20220303
  Serious: Yes (Life-Threatening, Other)
  Sender: FDA-Public Use
  Company Number: US-Breckenridge Pharmaceutical, Inc.-2122281

PATIENT
  Sex: Male
  Weight: 100 kg

DRUGS (9)
  1. DULOXETINE [Suspect]
     Active Substance: DULOXETINE
     Indication: Major depression
     Route: 048
  2. COVID-19 VACCINE NOS [Suspect]
     Active Substance: COVID-19 VACCINE NOS
  3. AMLODIPINE [Concomitant]
     Active Substance: AMLODIPINE BESYLATE
  4. EZETIMIBE [Concomitant]
     Active Substance: EZETIMIBE
  5. ALFUZOSIN HYDROCHLORIDE [Concomitant]
     Active Substance: ALFUZOSIN HYDROCHLORIDE
  6. LOSARTAN [Concomitant]
     Active Substance: LOSARTAN
  7. CLONIDINE [Concomitant]
     Active Substance: CLONIDINE
  8. HYDROCHLOROTHIAZIDE [Concomitant]
     Active Substance: HYDROCHLOROTHIAZIDE
     Route: 048
  9. OTC vitamins [Concomitant]
     Route: 048

REACTIONS (23)
  - Male orgasmic disorder [Unknown]
  - Erectile dysfunction [Unknown]
  - Retrograde ejaculation [Unknown]
  - Hyperhidrosis [Unknown]
  - Bone pain [Unknown]
  - Musculoskeletal chest pain [Unknown]
  - Blood pressure increased [Unknown]
  - Wheezing [Unknown]
  - Cough [Unknown]
  - Upper-airway cough syndrome [Unknown]
  - Asthma [Unknown]
  - Paraesthesia [Unknown]
  - Burning sensation [Unknown]
  - Hypoaesthesia [Unknown]
  - Muscle spasms [Unknown]
  - Liver injury [Unknown]
  - Renal injury [Unknown]
  - Myocardial fibrosis [Unknown]
  - Drug withdrawal syndrome [Unknown]
  - Drug withdrawal syndrome [Unknown]
  - Insomnia [Unknown]
  - Mania [Unknown]
  - Endocrine disorder [Unknown]
